FAERS Safety Report 26061296 (Version 1)
Quarter: 2025Q4

REPORT INFORMATION
  Report Type: Spontaneous
  Country: EU (occurrence: EU)
  Receive Date: 20251118
  Receipt Date: 20251118
  Transmission Date: 20260118
  Serious: Yes (Other)
  Sender: PFIZER
  Company Number: EU-PFIZER INC-202500224769

PATIENT
  Age: 31 Year
  Sex: Male

DRUGS (2)
  1. TAVOR (LORAZEPAM) [Suspect]
     Active Substance: LORAZEPAM
     Dosage: 3.5 MG
  2. TAVOR (LORAZEPAM) [Suspect]
     Active Substance: LORAZEPAM
     Dosage: 2.5 MG  (1 AT LUNCH, 1.5 IN THE EVENING)

REACTIONS (4)
  - Schizophrenia [Unknown]
  - Anxiety [Unknown]
  - Hyperhidrosis [Unknown]
  - Fear [Unknown]
